FAERS Safety Report 4449699-4 (Version None)
Quarter: 2004Q3

REPORT INFORMATION
  Report Type: 
  Country: None (occurrence: None)
  Receive Date: 20040913
  Receipt Date: 20040913
  Transmission Date: 20050211
  Serious: Yes (Disabling)
  Sender: FDA-Public Use
  Company Number: None

PATIENT
  Sex: Female
  Weight: 99.7913 kg

DRUGS (2)
  1. CIPROFLOXACIN [Suspect]
     Indication: ARTHRITIS INFECTIVE
     Dosage: ORAL
     Route: 048
     Dates: start: 20040323, end: 20040407
  2. LEVAQUIN [Suspect]
     Indication: ARTHRITIS INFECTIVE
     Dosage: ORAL
     Route: 048
     Dates: start: 20040310, end: 20040323

REACTIONS (5)
  - ASTHENIA [None]
  - BURNING SENSATION [None]
  - HYPOAESTHESIA [None]
  - PAIN IN EXTREMITY [None]
  - SENSORY DISTURBANCE [None]
